FAERS Safety Report 8997009 (Version 1)
Quarter: 2013Q1

REPORT INFORMATION
  Report Type: Spontaneous
  Country: US (occurrence: None)
  Receive Date: 20130102
  Receipt Date: 20130102
  Transmission Date: 20140127
  Serious: Yes (Other)
  Sender: FDA-Public Use
  Company Number: None

PATIENT
  Sex: Male
  Weight: 86.64 kg

DRUGS (2)
  1. DILTIAZEM CD [Suspect]
     Indication: SUPRAVENTRICULAR TACHYCARDIA
     Dosage: DILTIAZEM 240 CD PO
     Route: 048
     Dates: start: 20090323, end: 20100423
  2. DILTIAZEM CD [Suspect]
     Indication: HYPERTENSION
     Dosage: DILTIAZEM 240 CD PO
     Route: 048
     Dates: start: 20090323, end: 20100423

REACTIONS (3)
  - Palpitations [None]
  - Tachycardia [None]
  - Product substitution issue [None]
